FAERS Safety Report 13826929 (Version 1)
Quarter: 2017Q3

REPORT INFORMATION
  Report Type: Spontaneous
  Country: US (occurrence: US)
  Receive Date: 20170802
  Receipt Date: 20170802
  Transmission Date: 20171127
  Serious: No
  Sender: FDA-Public Use
  Company Number: US-ROCHE-662006

PATIENT
  Age: 59 Year
  Sex: Female

DRUGS (1)
  1. BONIVA [Suspect]
     Active Substance: IBANDRONATE SODIUM
     Indication: OSTEOPOROSIS
     Route: 048
     Dates: start: 20091005, end: 20091005

REACTIONS (4)
  - Dizziness [Unknown]
  - Headache [Unknown]
  - Facial pain [Unknown]
  - Nausea [Unknown]
